FAERS Safety Report 23291255 (Version 2)
Quarter: 2023Q4

REPORT INFORMATION
  Report Type: Report from Study
  Country: CN (occurrence: CN)
  Receive Date: 20231213
  Receipt Date: 20231220
  Transmission Date: 20240109
  Serious: Yes (Other)
  Sender: FDA-Public Use
  Company Number: CN-JNJFOC-20231216240

PATIENT

DRUGS (1)
  1. SELEXIPAG [Suspect]
     Active Substance: SELEXIPAG
     Indication: Product used for unknown indication
     Route: 048

REACTIONS (19)
  - Pneumonia [Unknown]
  - Intussusception [Unknown]
  - Dialysis hypotension [Unknown]
  - Metapneumovirus infection [Unknown]
  - Haemoglobin decreased [Unknown]
  - Iron deficiency anaemia [Unknown]
  - Blood creatinine abnormal [Unknown]
  - Liver function test increased [Unknown]
  - Hepatic function abnormal [Unknown]
  - Pyrexia [Unknown]
  - Decreased appetite [Unknown]
  - Flushing [Unknown]
  - Pain in jaw [Unknown]
  - Myalgia [Unknown]
  - Headache [Unknown]
  - Nausea [Unknown]
  - Diarrhoea [Unknown]
  - Pain in extremity [Unknown]
  - Off label use [Unknown]
